FAERS Safety Report 10697904 (Version 1)
Quarter: 2015Q1

REPORT INFORMATION
  Report Type: Spontaneous
  Country: VN (occurrence: VN)
  Receive Date: 20150108
  Receipt Date: 20150108
  Transmission Date: 20150721
  Serious: Yes (Hospitalization)
  Sender: FDA-Public Use
  Company Number: VN-009507513-1501VNM001283

PATIENT
  Sex: Female

DRUGS (1)
  1. HYZAAR [Suspect]
     Active Substance: HYDROCHLOROTHIAZIDE\LOSARTAN POTASSIUM
     Dosage: 1 TABLET (50/12/5 MG) ONCE A DAY
     Route: 048
     Dates: start: 20100306

REACTIONS (3)
  - Abdominal pain upper [Unknown]
  - Adverse event [Unknown]
  - Hypertension [Unknown]
